FAERS Safety Report 8127985-4 (Version None)
Quarter: 2012Q1

REPORT INFORMATION
  Report Type: 
  Country: None (occurrence: None)
  Receive Date: 20120210
  Receipt Date: 20111201
  Transmission Date: 20120608
  Serious: No
  Sender: FDA-Public Use
  Company Number: US-GLAXOSMITHKLINE-A0957158A

PATIENT
  Sex: Female

DRUGS (2)
  1. PAXIL CR [Suspect]
     Indication: ANXIETY
     Dosage: 12.5MG PER DAY
     Route: 048
  2. LEXAPRO [Suspect]
     Indication: ANXIETY
     Route: 048
     Dates: start: 20110101, end: 20110301

REACTIONS (7)
  - GASTRITIS EROSIVE [None]
  - WITHDRAWAL SYNDROME [None]
  - ANXIETY [None]
  - PALPITATIONS [None]
  - INSOMNIA [None]
  - BLOOD CORTISOL INCREASED [None]
  - TREMOR [None]
